FAERS Safety Report 9209955 (Version 1)
Quarter: 2013Q2

REPORT INFORMATION
  Report Type: Report from Study
  Country: GB (occurrence: GB)
  Receive Date: 20130404
  Receipt Date: 20130404
  Transmission Date: 20140414
  Serious: Yes (Other)
  Sender: FDA-Public Use
  Company Number: GB-JNJFOC-20130400635

PATIENT
  Age: 39 Year
  Sex: Male

DRUGS (3)
  1. GOLIMUMAB [Suspect]
     Indication: PRODUCT USED FOR UNKNOWN INDICATION
     Route: 058
  2. GOLIMUMAB [Suspect]
     Indication: PRODUCT USED FOR UNKNOWN INDICATION
     Route: 058
     Dates: start: 20130324
  3. ANTI-DEPRESSANTS [Concomitant]
     Indication: DEPRESSION

REACTIONS (5)
  - Depression [Unknown]
  - Condition aggravated [Unknown]
  - Rhinitis [Unknown]
  - Muscle spasms [Unknown]
  - Lower respiratory tract infection [Unknown]
